FAERS Safety Report 5509653-8 (Version None)
Quarter: 2007Q4

REPORT INFORMATION
  Report Type: 
  Country: None (occurrence: None)
  Receive Date: 20071107
  Receipt Date: 20071107
  Transmission Date: 20080405
  Serious: No
  Sender: FDA-Public Use
  Company Number: None

PATIENT
  Sex: Female

DRUGS (3)
  1. LEXAPRO [Suspect]
     Indication: DEPRESSION
     Dosage: 20MG 1QD PO
     Route: 048
     Dates: start: 20071005, end: 20071102
  2. BUPROPRION [Concomitant]
  3. PREVACID [Concomitant]

REACTIONS (4)
  - ANORGASMIA [None]
  - FEELING HOT [None]
  - HYPERHIDROSIS [None]
  - TREMOR [None]
